FAERS Safety Report 10043183 (Version 1)
Quarter: 2014Q1

REPORT INFORMATION
  Report Type: Spontaneous
  Country: FR (occurrence: FR)
  Receive Date: 20140328
  Receipt Date: 20140328
  Transmission Date: 20141002
  Serious: Yes (Hospitalization)
  Sender: FDA-Public Use
  Company Number: FR-ROCHE-1368838

PATIENT
  Age: 51 Year
  Sex: Female

DRUGS (5)
  1. INTERFERON ALFA-2A [Suspect]
     Indication: CHRONIC HEPATITIS C
     Dosage: 3 MU THRE TIMES WEEKLY, 6 MONTHS
     Route: 065
     Dates: start: 1998
  2. INTERFERON ALFA-2A [Suspect]
     Indication: CHRONIC HEPATITIS C
     Dosage: 3 MU THRE TIMES WEEKLY
     Route: 065
     Dates: start: 2000
  3. RIBAVIRIN [Concomitant]
     Route: 065
  4. AMANTADINE [Concomitant]
     Indication: CHRONIC HEPATITIS C
  5. PEGINTERFERON ALFA-2B [Concomitant]
     Indication: CHRONIC HEPATITIS C
     Route: 065

REACTIONS (1)
  - Thrombotic thrombocytopenic purpura [Recovered/Resolved]
